FAERS Safety Report 14261987 (Version 3)
Quarter: 2018Q1

REPORT INFORMATION
  Report Type: Report from Study
  Country: None (occurrence: CO)
  Receive Date: 20171208
  Receipt Date: 20180210
  Transmission Date: 20180508
  Serious: Yes (Death, Other)
  Sender: FDA-Public Use
  Company Number: CO-ABBVIE-17K-036-2187242-00

PATIENT
  Age: 58 Year
  Sex: Female
  Weight: 46 kg

DRUGS (4)
  1. HUMIRA [Suspect]
     Active Substance: ADALIMUMAB
     Indication: RHEUMATOID ARTHRITIS
     Route: 058
     Dates: start: 20120309, end: 20170321
  2. PREDNISOLONE. [Concomitant]
     Active Substance: PREDNISOLONE
     Indication: PRODUCT USED FOR UNKNOWN INDICATION
  3. ACETAMINOPHEN. [Concomitant]
     Active Substance: ACETAMINOPHEN
     Indication: PRODUCT USED FOR UNKNOWN INDICATION
  4. METOPROLOL. [Concomitant]
     Active Substance: METOPROLOL
     Indication: PRODUCT USED FOR UNKNOWN INDICATION

REACTIONS (7)
  - Post procedural complication [Not Recovered/Not Resolved]
  - Procedural dizziness [Not Recovered/Not Resolved]
  - Asthenia [Not Recovered/Not Resolved]
  - Renal surgery [Not Recovered/Not Resolved]
  - Procedural nausea [Not Recovered/Not Resolved]
  - Hypercalcaemia [Unknown]
  - Hypotension [Fatal]

NARRATIVE: CASE EVENT DATE: 20171121
